FAERS Safety Report 10271559 (Version 5)
Quarter: 2014Q3

REPORT INFORMATION
  Report Type: Report from Study
  Country: US (occurrence: US)
  Receive Date: 20140701
  Receipt Date: 20140813
  Transmission Date: 20150326
  Serious: Yes (Death, Hospitalization)
  Sender: FDA-Public Use
  Company Number: US-ACTELION-A-NJ2014-101313

PATIENT
  Age: 53 Year
  Sex: Female

DRUGS (3)
  1. FLOLAN [Concomitant]
     Active Substance: EPOPROSTENOL SODIUM
     Dosage: UNK
     Dates: start: 201406
  2. VENTAVIS [Suspect]
     Active Substance: ILOPROST
     Indication: PULMONARY ARTERIAL HYPERTENSION
     Dosage: 5 MCG. 6-9 TIMES DAILY
     Route: 055
     Dates: start: 201404, end: 201406
  3. REVATIO [Concomitant]
     Active Substance: SILDENAFIL CITRATE

REACTIONS (5)
  - Anal cancer recurrent [Fatal]
  - Anorectal cellulitis [Unknown]
  - Abscess [Not Recovered/Not Resolved]
  - Pulmonary arterial pressure increased [Unknown]
  - Metastasis [Fatal]

NARRATIVE: CASE EVENT DATE: 20140623
